FAERS Safety Report 9467820 (Version 1)
Quarter: 2013Q3

REPORT INFORMATION
  Report Type: Spontaneous
  Country: JP (occurrence: JP)
  Receive Date: 20130821
  Receipt Date: 20130821
  Transmission Date: 20140515
  Serious: Yes (Other)
  Sender: FDA-Public Use
  Company Number: JP-BAYER-2013-100158

PATIENT
  Age: 58 Year
  Sex: Female

DRUGS (1)
  1. BETAFERON [Suspect]
     Dosage: UNK

REACTIONS (1)
  - Cardiac failure [None]
